FAERS Safety Report 8593896-3 (Version None)
Quarter: 2012Q3

REPORT INFORMATION
  Report Type: 
  Country: None (occurrence: None)
  Receive Date: 20120803
  Receipt Date: 20120803
  Transmission Date: 20120928
  Serious: No
  Sender: FDA-Public Use
  Company Number: None

PATIENT
  Age: 76 Year
  Sex: Female

DRUGS (9)
  1. REVLIMID [Suspect]
     Indication: MULTIPLE MYELOMA
     Dosage: 10 MG DAILY X 21/28 DAYS BY MOUTH
     Route: 048
     Dates: start: 20120301, end: 20120701
  2. ATENOLOL [Concomitant]
  3. POTASSIUM CHLORIDE [Concomitant]
  4. ATORVASTATIN [Concomitant]
  5. DEXAMETHASONE [Concomitant]
  6. REVLIMID [Suspect]
  7. HYDROCHLOROTHIAZIDE [Concomitant]
  8. EPOETIN [Concomitant]
  9. LOSARTAN POTASSIUM [Concomitant]

REACTIONS (9)
  - RENAL IMPAIRMENT [None]
  - FEELING ABNORMAL [None]
  - DECREASED APPETITE [None]
  - OEDEMA PERIPHERAL [None]
  - FATIGUE [None]
  - WEIGHT DECREASED [None]
  - MALAISE [None]
  - ASTHENIA [None]
  - DYSGEUSIA [None]
